FAERS Safety Report 5941817-1 (Version None)
Quarter: 2008Q4

REPORT INFORMATION
  Report Type: 
  Country: None (occurrence: None)
  Receive Date: 20081105
  Receipt Date: 20081104
  Transmission Date: 20090506
  Serious: Yes (Disabling)
  Sender: FDA-Public Use
  Company Number: DE-BRISTOL-MYERS SQUIBB COMPANY-14376685

PATIENT
  Age: 57 Year
  Sex: Male
  Weight: 77 kg

DRUGS (1)
  1. ORENCIA [Suspect]
     Indication: SPONDYLOARTHROPATHY
     Route: 042
     Dates: start: 20071102, end: 20080725

REACTIONS (1)
  - POLYNEUROPATHY [None]
